FAERS Safety Report 16714997 (Version 1)
Quarter: 2019Q3

REPORT INFORMATION
  Report Type: Spontaneous
  Country: US (occurrence: US)
  Receive Date: 20190819
  Receipt Date: 20190819
  Transmission Date: 20191005
  Serious: No
  Sender: FDA-Public Use
  Company Number: US-BAYER-2019-152118

PATIENT
  Age: 70 Year
  Sex: Male
  Weight: 100 kg

DRUGS (3)
  1. ALEVE PM [Suspect]
     Active Substance: DIPHENHYDRAMINE HYDROCHLORIDE\NAPROXEN SODIUM
     Indication: PAIN
     Dosage: 2 DF, BID
     Dates: start: 2009
  2. TRAMADOL. [Suspect]
     Active Substance: TRAMADOL
  3. ALEVE [Suspect]
     Active Substance: NAPROXEN SODIUM
     Indication: PAIN
     Dosage: 2 DF, BID
     Route: 048
     Dates: start: 2009

REACTIONS (2)
  - Therapeutic response shortened [Unknown]
  - Extra dose administered [Unknown]
